FAERS Safety Report 18138805 (Version 1)
Quarter: 2020Q3

REPORT INFORMATION
  Report Type: Spontaneous
  Country: US (occurrence: US)
  Receive Date: 20200811
  Receipt Date: 20200811
  Transmission Date: 20201103
  Serious: Yes (Life-Threatening, Hospitalization, Disabling, Other)
  Sender: FDA-Public Use
  Company Number: None

PATIENT
  Age: 22 Year
  Sex: Male
  Weight: 66.15 kg

DRUGS (1)
  1. DELSYM [Suspect]
     Active Substance: DEXTROMETHORPHAN
     Indication: INTENTIONAL OVERDOSE
     Dosage: ?          QUANTITY:10 ML;?
     Route: 048

REACTIONS (4)
  - Suicidal ideation [None]
  - Intentional overdose [None]
  - Aggression [None]
  - Thinking abnormal [None]

NARRATIVE: CASE EVENT DATE: 20200723
